FAERS Safety Report 9464255 (Version 4)
Quarter: 2014Q2

REPORT INFORMATION
  Report Type: Spontaneous
  Country: US (occurrence: US)
  Receive Date: 20130819
  Receipt Date: 20140519
  Transmission Date: 20141212
  Serious: Yes (Death, Hospitalization, Other)
  Sender: FDA-Public Use
  Company Number: US-009507513-1308USA006554

PATIENT
  Sex: Female
  Weight: 66.21 kg

DRUGS (3)
  1. FOSAMAX [Suspect]
     Indication: OSTEOPOROSIS
     Dosage: 70 MG, UNK
     Route: 048
  2. ONE-A-DAY WOMEN^S [Concomitant]
     Dosage: QD
     Dates: start: 1995, end: 20110802
  3. CALCIUM (UNSPECIFIED) [Concomitant]
     Dosage: 600 MG, BID
     Dates: start: 1995, end: 20110802

REACTIONS (76)
  - Femur fracture [Recovered/Resolved]
  - Intramedullary rod insertion [Unknown]
  - Intramedullary rod insertion [Unknown]
  - Spinal osteoarthritis [Not Recovered/Not Resolved]
  - Arteriosclerosis coronary artery [Fatal]
  - Disseminated intravascular coagulation [Unknown]
  - Monoclonal gammopathy [Unknown]
  - Bone marrow failure [Unknown]
  - Respiratory failure [Unknown]
  - Renal failure [Unknown]
  - Cardiac pacemaker insertion [Unknown]
  - Coronary artery bypass [Unknown]
  - Aortic valve replacement [Unknown]
  - Mitral valve repair [Unknown]
  - Tricuspid valve repair [Unknown]
  - Renal failure acute [Unknown]
  - Pulmonary embolism [Unknown]
  - Spinal fusion surgery [Unknown]
  - Cerebrovascular accident [Unknown]
  - Acute prerenal failure [Unknown]
  - Sepsis [Unknown]
  - Plasma cell myeloma [Unknown]
  - Immune thrombocytopenic purpura [Unknown]
  - Anaemia [Unknown]
  - Thrombocytopenia [Unknown]
  - Femur fracture [Unknown]
  - Hypercholesterolaemia [Unknown]
  - Hypertension [Unknown]
  - Cardiac failure congestive [Unknown]
  - Renal tubular necrosis [Unknown]
  - Osteopenia [Unknown]
  - Foot fracture [Recovering/Resolving]
  - Fall [Unknown]
  - Spinal column stenosis [Unknown]
  - Pulmonary hypertension [Unknown]
  - Exostosis [Unknown]
  - Carpal tunnel syndrome [Unknown]
  - Carpal tunnel decompression [Unknown]
  - Bunion operation [Unknown]
  - Polymyalgia rheumatica [Not Recovered/Not Resolved]
  - Peripheral vascular disorder [Unknown]
  - Type 2 diabetes mellitus [Unknown]
  - Cataract operation [Unknown]
  - Nephrolithiasis [Unknown]
  - Spinal osteoarthritis [Unknown]
  - Cervical spinal stenosis [Unknown]
  - Osteoarthritis [Unknown]
  - Arthritis [Unknown]
  - Trigger finger [Unknown]
  - Eye operation [Unknown]
  - Nephrolithiasis [Unknown]
  - Renal stone removal [Unknown]
  - Anaemia [Unknown]
  - Aortic stenosis [Unknown]
  - Aortic valve stenosis [Unknown]
  - Mitral valve incompetence [Unknown]
  - Tricuspid valve incompetence [Unknown]
  - Diastolic dysfunction [Unknown]
  - Left atrial dilatation [Unknown]
  - Osteoarthritis [Unknown]
  - Pyrexia [Unknown]
  - Cough [Unknown]
  - Hypercalcaemia [Unknown]
  - Electrolyte imbalance [Unknown]
  - Atrial fibrillation [Not Recovered/Not Resolved]
  - Chronic obstructive pulmonary disease [Not Recovered/Not Resolved]
  - Sick sinus syndrome [Unknown]
  - Epistaxis [Unknown]
  - Pneumonia [Unknown]
  - Heparin-induced thrombocytopenia test positive [Unknown]
  - Cardiomyopathy [Unknown]
  - Depression [Unknown]
  - Myelodysplastic syndrome [Unknown]
  - Haemolysis [Unknown]
  - Arthralgia [Unknown]
  - Oedema peripheral [Unknown]
